FAERS Safety Report 9279468 (Version 4)
Quarter: 2013Q3

REPORT INFORMATION
  Report Type: Spontaneous
  Country: US (occurrence: US)
  Receive Date: 20130508
  Receipt Date: 20130913
  Transmission Date: 20140515
  Serious: No
  Sender: FDA-Public Use
  Company Number: US-009507513-1305USA000950

PATIENT
  Sex: Female

DRUGS (1)
  1. IMPLANON [Suspect]
     Dosage: 1 ROD, CONCENTRATION:68
     Route: 059
     Dates: start: 20101104

REACTIONS (2)
  - Weight increased [Unknown]
  - Medical device complication [Unknown]
